FAERS Safety Report 7632890-3 (Version None)
Quarter: 2011Q3

REPORT INFORMATION
  Report Type: 
  Country: None (occurrence: None)
  Receive Date: 20110725
  Receipt Date: 20110713
  Transmission Date: 20111222
  Serious: Yes (Other)
  Sender: FDA-Public Use
  Company Number: PHHY2011CM62659

PATIENT
  Age: 42 Year
  Sex: Female

DRUGS (1)
  1. DICLOFENAC POTASSIUM [Suspect]
     Indication: MIGRAINE
     Dosage: ONE SINGLE-DOSE PACKET PER DAY
     Route: 048

REACTIONS (2)
  - ABORTION SPONTANEOUS [None]
  - MATERNAL EXPOSURE DURING PREGNANCY [None]
